FAERS Safety Report 5394334-4 (Version None)
Quarter: 2007Q3

REPORT INFORMATION
  Report Type: 
  Country: None (occurrence: None)
  Receive Date: 20070723
  Receipt Date: 20070608
  Transmission Date: 20080115
  Serious: Yes (Hospitalization)
  Sender: FDA-Public Use
  Company Number: A0652853A

PATIENT
  Age: 89 Year
  Sex: Male

DRUGS (10)
  1. AVANDIA [Suspect]
     Dosage: 8MG PER DAY
     Route: 048
     Dates: start: 19990101, end: 20070501
  2. ASPIRIN [Concomitant]
  3. QUINAPRIL [Concomitant]
  4. AMLODIPINE [Concomitant]
  5. SANCTURA [Concomitant]
  6. CENTRUM SILVER [Concomitant]
  7. TYLENOL (CAPLET) [Concomitant]
  8. GLIPIZIDE [Concomitant]
  9. MULTIVITAMIN [Concomitant]
  10. LIPITOR [Concomitant]

REACTIONS (2)
  - JOINT SWELLING [None]
  - OEDEMA PERIPHERAL [None]
